FAERS Safety Report 7104730-2 (Version None)
Quarter: 2010Q4

REPORT INFORMATION
  Report Type: 
  Country: None (occurrence: None)
  Receive Date: 20101116
  Receipt Date: 20101104
  Transmission Date: 20110411
  Serious: Yes (Life-Threatening, Hospitalization, Other)
  Sender: FDA-Public Use
  Company Number: CA-JNJFOC-20101102050

PATIENT
  Age: 68 Year
  Sex: Female
  Weight: 88.1 kg

DRUGS (9)
  1. REMICADE [Suspect]
     Indication: RHEUMATOID ARTHRITIS
     Dosage: AT 0, 2, 4 AND 6 WEEKS
     Route: 042
  2. REMICADE [Suspect]
     Dosage: AT 0, 2, 4, 6 THEN 8 WEEKS
     Route: 042
  3. METHOTREXATE [Concomitant]
     Indication: ARTHRITIS
     Route: 048
  4. NEXIUM [Concomitant]
     Indication: GASTROINTESTINAL DISORDER THERAPY
     Route: 048
  5. CELEBREX [Concomitant]
     Indication: ARTHRITIS
     Route: 048
  6. NORVASC [Concomitant]
     Indication: HYPERTENSION
     Route: 048
  7. MICARDIS HCT [Concomitant]
     Indication: HYPERTENSION
     Route: 048
  8. CARDURA [Concomitant]
     Indication: HYPERTENSION
     Route: 048
  9. SYNTHROID [Concomitant]
     Indication: HYPOTHYROIDISM
     Route: 048

REACTIONS (1)
  - ENDOMETRIAL NEOPLASM [None]
